FAERS Safety Report 6771702-7 (Version None)
Quarter: 2010Q2

REPORT INFORMATION
  Report Type: 
  Country: None (occurrence: None)
  Receive Date: 20100616
  Receipt Date: 20100427
  Transmission Date: 20101027
  Serious: No
  Sender: FDA-Public Use
  Company Number: US-ASTRAZENECA-2010SE18897

PATIENT
  Age: 58 Year
  Sex: Female
  Weight: 86.2 kg

DRUGS (2)
  1. ATACAND [Suspect]
     Indication: HYPERTENSION
     Route: 048
     Dates: start: 20070101, end: 20100401
  2. TOPROL-XL [Suspect]
     Indication: HYPERTENSION
     Route: 048
     Dates: start: 20050101, end: 20070101

REACTIONS (7)
  - COUGH [None]
  - FEELING ABNORMAL [None]
  - HAEMATURIA [None]
  - HEADACHE [None]
  - NEPHROLITHIASIS [None]
  - POLLAKIURIA [None]
  - WEIGHT INCREASED [None]
